FAERS Safety Report 9565575 (Version 1)
Quarter: 2013Q3

REPORT INFORMATION
  Report Type: Spontaneous
  Country: US (occurrence: US)
  Receive Date: 20130930
  Receipt Date: 20130930
  Transmission Date: 20140515
  Serious: Yes (Other)
  Sender: FDA-Public Use
  Company Number: US-JNJFOC-20130915242

PATIENT
  Age: 51 Year
  Sex: Male
  Weight: 91.1 kg

DRUGS (10)
  1. REMICADE [Suspect]
     Indication: CROHN^S DISEASE
     Route: 042
     Dates: start: 19990830
  2. REMICADE [Suspect]
     Indication: CROHN^S DISEASE
     Route: 042
     Dates: start: 19990809
  3. REMICADE [Suspect]
     Indication: CROHN^S DISEASE
     Route: 042
     Dates: start: 19990719
  4. PURINETHOL [Suspect]
     Indication: CROHN^S DISEASE
     Route: 048
     Dates: start: 199504
  5. VITAMIN B12 [Concomitant]
     Indication: SUPPLEMENTATION THERAPY
     Route: 050
  6. CALCIUM [Concomitant]
     Indication: SUPPLEMENTATION THERAPY
     Route: 048
  7. MULTIVITAMINS [Concomitant]
     Indication: SUPPLEMENTATION THERAPY
     Route: 048
  8. CENTRUM SILVER [Concomitant]
     Route: 065
  9. EXCEDRIN (ACETAMINOPHEN/ASPIRIN/CAFFEINE) [Concomitant]
     Route: 065
  10. ADVIL [Concomitant]
     Route: 065

REACTIONS (1)
  - Prostate cancer [Recovered/Resolved]
